FAERS Safety Report 5121764-8 (Version None)
Quarter: 2006Q4

REPORT INFORMATION
  Report Type: 
  Country: None (occurrence: None)
  Receive Date: 20061006
  Receipt Date: 20060925
  Transmission Date: 20070319
  Serious: Yes (Other)
  Sender: FDA-Public Use
  Company Number: PHNU2006DE03253

PATIENT
  Age: 61 Year
  Sex: Male
  Weight: 74 kg

DRUGS (4)
  1. SANDIMMUNE [Suspect]
     Indication: HEART TRANSPLANT
     Dosage: 80MG/DAY
     Dates: start: 20060201
  2. CERTICAN [Concomitant]
     Indication: HEART TRANSPLANT
     Dosage: 1MG/DAY
     Route: 048
     Dates: start: 20060201
  3. INEGY [Suspect]
     Indication: HYPERLIPIDAEMIA
     Dosage: 1 DF, QD
     Route: 048
     Dates: start: 20050901
  4. DILZEM - SLOW RELEASE ^ELAN^ [Suspect]
     Indication: HYPERTENSION
     Dosage: 160MG/DAY
     Route: 048
     Dates: start: 20040101

REACTIONS (2)
  - BLOOD CREATINE PHOSPHOKINASE INCREASED [None]
  - DRUG INTERACTION [None]
